FAERS Safety Report 7540235-2 (Version None)
Quarter: 2011Q2

REPORT INFORMATION
  Report Type: 
  Country: None (occurrence: None)
  Receive Date: 20110610
  Receipt Date: 20110601
  Transmission Date: 20111010
  Serious: Yes (Hospitalization)
  Sender: FDA-Public Use
  Company Number: US-ASTRAZENECA-2011SE34304

PATIENT

DRUGS (5)
  1. LOVASTATIN [Suspect]
     Route: 065
  2. PULMICORT [Suspect]
     Dosage: 2 VIALS PER WEEK
     Route: 055
  3. ALBUTEROL SULFATE AUTOHALER [Suspect]
     Dosage: TAKING 1 VIAL DAILY
     Route: 065
  4. PRAVACHOL [Suspect]
     Route: 065
  5. NORVASC [Suspect]
     Route: 065

REACTIONS (2)
  - EYE HAEMORRHAGE [None]
  - INCORRECT DOSE ADMINISTERED [None]
